FAERS Safety Report 5936259-9 (Version None)
Quarter: 2008Q4

REPORT INFORMATION
  Report Type: 
  Country: None (occurrence: None)
  Receive Date: 20081030
  Receipt Date: 20081021
  Transmission Date: 20090506
  Serious: Yes (Hospitalization, Other)
  Sender: FDA-Public Use
  Company Number: SG-PFIZER INC-2008089867

PATIENT
  Age: 53 Year
  Sex: Male

DRUGS (5)
  1. LITHIUM [Suspect]
     Indication: MOOD SWINGS
     Dates: start: 20061201
  2. LITHIUM [Interacting]
     Dates: start: 20061201
  3. FLUOXETINE [Interacting]
     Indication: DEPRESSION
     Dates: start: 20061201
  4. DOTHIEPIN [Concomitant]
     Indication: DEPRESSION
     Dates: start: 20061201, end: 20061201
  5. VALPROATE SODIUM [Concomitant]
     Indication: DEPRESSION
     Dates: start: 20061201, end: 20061201

REACTIONS (2)
  - DRUG INTERACTION [None]
  - SEROTONIN SYNDROME [None]
